FAERS Safety Report 8773534 (Version 2)
Quarter: 2012Q4

REPORT INFORMATION
  Report Type: 
  Country: US (occurrence: US)
  Receive Date: 20120907
  Receipt Date: 20121115
  Transmission Date: 20130627
  Serious: Yes (Death)
  Sender: FDA-Public Use
  Company Number: US-GLAXOSMITHKLINE-A0992426A

PATIENT
  Age: 76 Year
  Sex: Male

DRUGS (11)
  1. VOTRIENT [Suspect]
     Indication: RENAL CANCER
     Dosage: 800MG Per day
     Route: 065
  2. AVAPRO [Concomitant]
  3. FLOMAX [Concomitant]
  4. FINASTERIDE [Concomitant]
  5. LEVOTHYROXINE [Concomitant]
  6. LIPITOR [Concomitant]
  7. TOPROL [Concomitant]
  8. WARFARIN [Concomitant]
  9. DIALYVITE [Concomitant]
  10. LOVAZA [Concomitant]
  11. AMLODIPINE [Concomitant]

REACTIONS (1)
  - Renal cell carcinoma [Fatal]
